FAERS Safety Report 24646658 (Version 1)
Quarter: 2024Q4

REPORT INFORMATION
  Report Type: Spontaneous
  Country: US (occurrence: None)
  Receive Date: 20241120
  Receipt Date: 20241120
  Transmission Date: 20250115
  Serious: No
  Sender: Public
  Company Number: None

PATIENT
  Age: 60 Year
  Sex: Male
  Weight: 85 kg

DRUGS (1)
  1. AMOXICILLIN [Suspect]
     Active Substance: AMOXICILLIN
     Indication: Infection
     Dosage: FREQUENCY : 3 TIMES A DAY;?
     Route: 048
     Dates: start: 20240820, end: 20240820

REACTIONS (8)
  - Respiratory rate increased [None]
  - Chest pain [None]
  - Bronchospasm [None]
  - Nausea [None]
  - Pruritus [None]
  - Rash [None]
  - Urticaria [None]
  - Vomiting [None]

NARRATIVE: CASE EVENT DATE: 20240820
